FAERS Safety Report 18120800 (Version 3)
Quarter: 2021Q1

REPORT INFORMATION
  Report Type: Spontaneous
  Country: PR (occurrence: PR)
  Receive Date: 20200806
  Receipt Date: 20210111
  Transmission Date: 20210419
  Serious: No
  Sender: FDA-Public Use
  Company Number: PR-PFIZER INC-2020299342

PATIENT
  Age: 58 Year
  Sex: Female

DRUGS (1)
  1. LYRICA [Suspect]
     Active Substance: PREGABALIN
     Dosage: 250 MG, DAILY (50MG CAP, TAKE 1 CAP EVERY MORNING + 200MG CAP, TAKE 1 CAP EVERY NIGHT AT BEDTIME)
     Route: 048

REACTIONS (2)
  - Pain [Not Recovered/Not Resolved]
  - Memory impairment [Unknown]
